FAERS Safety Report 5534987-0 (Version None)
Quarter: 2007Q4

REPORT INFORMATION
  Report Type: 
  Country: None (occurrence: None)
  Receive Date: 20071203
  Receipt Date: 20071127
  Transmission Date: 20080405
  Serious: Yes (Death, Hospitalization)
  Sender: FDA-Public Use
  Company Number: 2007SP019214

PATIENT
  Age: 56 Year
  Sex: Female
  Weight: 80 kg

DRUGS (8)
  1. TEMODAR [Suspect]
     Indication: GLIOBLASTOMA MULTIFORME
     Dosage: 90 MG;QD;PO
     Route: 048
     Dates: start: 20070817, end: 20070910
  2. BEVACIZUMAB [Suspect]
     Indication: GLIOBLASTOMA MULTIFORME
     Dosage: 805 MG;QOW;IV : 805 MG;QOW;IV
     Route: 042
     Dates: start: 20070817, end: 20070817
  3. BEVACIZUMAB [Suspect]
     Indication: GLIOBLASTOMA MULTIFORME
     Dosage: 805 MG;QOW;IV : 805 MG;QOW;IV
     Route: 042
     Dates: start: 20070831, end: 20070831
  4. PROTONIX [Concomitant]
  5. SYNTHROID [Concomitant]
  6. ASPIRIN [Concomitant]
  7. KEPPRA [Concomitant]
  8. DECADRON [Concomitant]

REACTIONS (12)
  - ABASIA [None]
  - ASTHENIA [None]
  - BACTERIAL INFECTION [None]
  - CANDIDIASIS [None]
  - FALL [None]
  - HEMIPARESIS [None]
  - HERPES SIMPLEX [None]
  - HYPOTENSION [None]
  - LOBAR PNEUMONIA [None]
  - PNEUMONIA BACTERIAL [None]
  - PNEUMONIA FUNGAL [None]
  - PULMONARY MASS [None]
